FAERS Safety Report 24155004 (Version 2)
Quarter: 2024Q3

REPORT INFORMATION
  Report Type: Spontaneous
  Country: US (occurrence: US)
  Receive Date: 20240731
  Receipt Date: 20240918
  Transmission Date: 20241016
  Serious: No
  Sender: LUPIN
  Company Number: US-LUPIN PHARMACEUTICALS INC.-2024-06893

PATIENT

DRUGS (1)
  1. BUPROPION HYDROCHLORIDE [Suspect]
     Active Substance: BUPROPION HYDROCHLORIDE
     Indication: Product used for unknown indication
     Dosage: UNK (150 XL)
     Route: 065

REACTIONS (4)
  - Feeling of despair [Recovered/Resolved]
  - Asthenia [Recovered/Resolved]
  - Adverse event [Unknown]
  - Depression [Recovering/Resolving]
